FAERS Safety Report 8103390-1 (Version None)
Quarter: 2012Q1

REPORT INFORMATION
  Report Type: 
  Country: None (occurrence: None)
  Receive Date: 20120201
  Receipt Date: 20120119
  Transmission Date: 20120608
  Serious: Yes (Hospitalization)
  Sender: FDA-Public Use
  Company Number: DE-UCBSA-049965

PATIENT
  Sex: Female
  Weight: 75 kg

DRUGS (6)
  1. LEFLUNOMIDE [Concomitant]
     Indication: RHEUMATOID ARTHRITIS
     Dosage: FREQUENCY 1
     Route: 048
     Dates: start: 20091201
  2. CALCIUM CARBONATE [Concomitant]
     Indication: OSTEOPOROSIS
     Dosage: FREQUENCY 2
     Route: 048
     Dates: start: 20090101
  3. AMLODIPINE [Concomitant]
     Indication: HYPERTENSION
     Route: 048
     Dates: start: 20090101
  4. IRBESARTAN [Concomitant]
     Indication: HYPERTENSION
     Dosage: FREQUENCY 2
     Route: 048
     Dates: start: 20090101
  5. CERTOLIZUMAB PEGOL [Suspect]
     Indication: RHEUMATOID ARTHRITIS
     Route: 058
     Dates: start: 20110224
  6. PREDNISOLONE [Concomitant]
     Indication: RHEUMATOID ARTHRITIS
     Dosage: FREQUENCY 1
     Route: 048
     Dates: start: 20070101

REACTIONS (2)
  - LUPUS-LIKE SYNDROME [None]
  - FUNGAL SKIN INFECTION [None]
